FAERS Safety Report 16820125 (Version 1)
Quarter: 2019Q3

REPORT INFORMATION
  Report Type: Spontaneous
  Country: PT (occurrence: PT)
  Receive Date: 20190918
  Receipt Date: 20190918
  Transmission Date: 20191005
  Serious: Yes (Death, Hospitalization)
  Sender: FDA-Public Use
  Company Number: PT-TEVA-2019-PT-1108470

PATIENT
  Age: 49 Year
  Sex: Female

DRUGS (10)
  1. DOXORUBICIN [Suspect]
     Active Substance: DOXORUBICIN
     Indication: IMMUNOSUPPRESSANT DRUG THERAPY
     Dosage: FIRST COURSE
     Route: 065
  2. DEXAMETHASONE. [Suspect]
     Active Substance: DEXAMETHASONE
     Indication: IMMUNOSUPPRESSANT DRUG THERAPY
     Dosage: FIRST COURSE
     Route: 065
  3. MEROPENEM. [Suspect]
     Active Substance: MEROPENEM
     Indication: ANTIBIOTIC THERAPY
     Dosage: 3 GRAM DAILY;
     Route: 065
  4. MEROPENEM. [Suspect]
     Active Substance: MEROPENEM
     Indication: ANTIBIOTIC THERAPY
     Dosage: 6 GRAM DAILY; IN A 3H EXTENDED INFUSION
     Route: 065
  5. AMIKACIN. [Suspect]
     Active Substance: AMIKACIN
     Indication: ANTIBIOTIC THERAPY
     Dosage: 1 GRAM DAILY;
     Route: 065
  6. COLISTIN [Suspect]
     Active Substance: COLISTIN
     Indication: ANTIBIOTIC THERAPY
     Dosage: LOADING DOSE OF 8MU; FOLLOWED BY A MAINTENANCE DOSE OF 4MU EVERY 12H.
     Route: 042
  7. COLISTIN [Suspect]
     Active Substance: COLISTIN
     Indication: ANTIBIOTIC THERAPY
     Dosage: MAINTENANCE DOSE OF 4MU
     Route: 042
  8. COLISTIN [Suspect]
     Active Substance: COLISTIN
     Indication: ANTIBIOTIC THERAPY
     Dosage: INCREASED 5MU EVERY 12H
     Route: 042
  9. CYCLOPHOSPHAMIDE. [Suspect]
     Active Substance: CYCLOPHOSPHAMIDE
     Indication: IMMUNOSUPPRESSANT DRUG THERAPY
     Route: 065
  10. VINCRISTINE [Suspect]
     Active Substance: VINCRISTINE
     Indication: IMMUNOSUPPRESSANT DRUG THERAPY
     Dosage: FIRST COURSE
     Route: 065

REACTIONS (6)
  - Neutropenic colitis [Unknown]
  - Treatment failure [Unknown]
  - Klebsiella infection [Unknown]
  - Pathogen resistance [Unknown]
  - Multiple organ dysfunction syndrome [Fatal]
  - Osteomyelitis [Unknown]
